FAERS Safety Report 4413136-6 (Version None)
Quarter: 2004Q3

REPORT INFORMATION
  Report Type: 
  Country: None (occurrence: None)
  Receive Date: 20040802
  Receipt Date: 20040802
  Transmission Date: 20050211
  Serious: Yes (Life-Threatening, Other)
  Sender: FDA-Public Use
  Company Number: None

PATIENT
  Age: 16 Year
  Sex: Female
  Weight: 63.5036 kg

DRUGS (2)
  1. ADDERALL XR 15 [Suspect]
     Indication: ATTENTION DEFICIT/HYPERACTIVITY DISORDER
     Dosage: 15 MG 1XDAILY MOR ORAL
     Route: 048
     Dates: start: 20040105, end: 20040730
  2. ZOLOFT [Suspect]
     Indication: DEPRESSION
     Dosage: 200 MG 1X DAILY ORAL
     Route: 048
     Dates: start: 20040105, end: 20040730

REACTIONS (32)
  - ABNORMAL DREAMS [None]
  - ALOPECIA [None]
  - AMNESIA [None]
  - ANOREXIA [None]
  - BACTERIAL INFECTION [None]
  - BALANCE DISORDER [None]
  - CONDITION AGGRAVATED [None]
  - CONFUSIONAL STATE [None]
  - DEPRESSION [None]
  - DIZZINESS [None]
  - DRUG INEFFECTIVE [None]
  - DRUG TOLERANCE [None]
  - EYE INFECTION [None]
  - FATIGUE [None]
  - FUNGAL INFECTION [None]
  - GENITAL INFECTION BACTERIAL [None]
  - HEART RATE INCREASED [None]
  - HEART RATE IRREGULAR [None]
  - INFECTION [None]
  - INSOMNIA [None]
  - LOSS OF CONSCIOUSNESS [None]
  - MANIA [None]
  - MEDICATION ERROR [None]
  - MIGRAINE [None]
  - MOOD ALTERED [None]
  - MUSCULAR WEAKNESS [None]
  - NAUSEA [None]
  - OVERDOSE [None]
  - PSYCHOTIC DISORDER [None]
  - RASH [None]
  - WEIGHT DECREASED [None]
  - WHITE BLOOD CELL COUNT ABNORMAL [None]
